FAERS Safety Report 4820924-0 (Version None)
Quarter: 2005Q4

REPORT INFORMATION
  Report Type: 
  Country: None (occurrence: None)
  Receive Date: 20051104
  Receipt Date: 20051024
  Transmission Date: 20060501
  Serious: Yes (Hospitalization)
  Sender: FDA-Public Use
  Company Number: FR-BRISTOL-MYERS SQUIBB COMPANY-13158092

PATIENT
  Age: 84 Year
  Sex: Female

DRUGS (3)
  1. AMIKLIN POWDER [Suspect]
     Dates: start: 20050610, end: 20050622
  2. VANCOMYCIN [Suspect]
     Dates: start: 20050610, end: 20050622
  3. TIENAM [Suspect]
     Dates: start: 20050610, end: 20050622

REACTIONS (2)
  - RASH ERYTHEMATOUS [None]
  - RASH PAPULAR [None]
